FAERS Safety Report 20679633 (Version 1)
Quarter: 2022Q2

REPORT INFORMATION
  Report Type: Spontaneous
  Country: US (occurrence: US)
  Receive Date: 20220406
  Receipt Date: 20220406
  Transmission Date: 20220721
  Serious: No
  Sender: FDA-Public Use
  Company Number: US-PFIZER INC-202101789349

PATIENT
  Age: 13 Year
  Sex: Female

DRUGS (2)
  1. GENOTROPIN [Suspect]
     Active Substance: SOMATROPIN
     Indication: Growth disorder
     Dosage: 1.6 MG, DAILY (EVERY DAY)
     Dates: start: 202111
  2. GENOTROPIN [Suspect]
     Active Substance: SOMATROPIN
     Indication: Renal disorder

REACTIONS (5)
  - Headache [Not Recovered/Not Resolved]
  - Influenza [Unknown]
  - Oropharyngeal pain [Unknown]
  - Pyrexia [Unknown]
  - Illness [Unknown]

NARRATIVE: CASE EVENT DATE: 20211101
